FAERS Safety Report 5602859-9 (Version None)
Quarter: 2008Q1

REPORT INFORMATION
  Report Type: 
  Country: None (occurrence: None)
  Receive Date: 20080111
  Receipt Date: 20070803
  Transmission Date: 20080703
  Serious: Yes (Other)
  Sender: FDA-Public Use
  Company Number: HQWYE490728JUL04

PATIENT
  Age: 71 Year
  Sex: Female

DRUGS (3)
  1. PREMPRO [Suspect]
  2. CLIMARA [Suspect]
  3. PROVERA [Suspect]

REACTIONS (1)
  - DEEP VEIN THROMBOSIS [None]
